FAERS Safety Report 11091518 (Version 1)
Quarter: 2015Q2

REPORT INFORMATION
  Report Type: Spontaneous
  Country: None (occurrence: None)
  Receive Date: 20150504
  Receipt Date: 20150504
  Transmission Date: 20150821
  Serious: No
  Sender: FDA-Public Use
  Company Number: None

PATIENT
  Age: 43 Year
  Sex: Female
  Weight: 49.9 kg

DRUGS (6)
  1. VITAMIN D [Concomitant]
     Active Substance: CHOLECALCIFEROL
  2. BUPROPION [Concomitant]
     Active Substance: BUPROPION
  3. CELEXA [Concomitant]
     Active Substance: CITALOPRAM HYDROBROMIDE
  4. D-AMPHETAMINE ER [Suspect]
     Active Substance: DEXTROAMPHETAMINE
     Indication: ATTENTION DEFICIT/HYPERACTIVITY DISORDER
     Dosage: 2 PILLS (10MG EACH)
     Route: 048
     Dates: start: 20150425, end: 20150429
  5. VITAMIN B [Concomitant]
     Active Substance: VITAMIN B
  6. OMEGA 3 [Concomitant]
     Active Substance: OMEGA-3 FATTY ACIDS

REACTIONS (12)
  - Head discomfort [None]
  - Impaired driving ability [None]
  - Nausea [None]
  - Feeling abnormal [None]
  - Product substitution issue [None]
  - Tinnitus [None]
  - Thinking abnormal [None]
  - Muscle tightness [None]
  - Ocular discomfort [None]
  - Vision blurred [None]
  - Product quality issue [None]
  - Paraesthesia [None]

NARRATIVE: CASE EVENT DATE: 20150429
